FAERS Safety Report 18495028 (Version 1)
Quarter: 2020Q4

REPORT INFORMATION
  Report Type: Report from Study
  Country: DE (occurrence: DE)
  Receive Date: 20201112
  Receipt Date: 20201112
  Transmission Date: 20210114
  Serious: Yes (Other)
  Sender: FDA-Public Use
  Company Number: DE-TEVA-2020-DE-1846218

PATIENT
  Sex: Female

DRUGS (1)
  1. PROPRANOLOL [Suspect]
     Active Substance: PROPRANOLOL HYDROCHLORIDE
     Indication: INFANTILE HAEMANGIOMA
     Dosage: 1.9 MG/KG DAILY; [INITIAL DOSAGE NOT STATED]; SHE DEVELOPED HYPOGLYCAEMIA AND POSSIBLE CEREBRAL SEIZ
     Route: 048

REACTIONS (4)
  - Sleep disorder [Unknown]
  - Fatigue [Unknown]
  - Hypoglycaemia [Unknown]
  - Seizure [Unknown]
